FAERS Safety Report 15664423 (Version 2)
Quarter: 2019Q1

REPORT INFORMATION
  Report Type: Spontaneous
  Country: US (occurrence: US)
  Receive Date: 20181128
  Receipt Date: 20190305
  Transmission Date: 20190417
  Serious: No
  Sender: FDA-Public Use
  Company Number: US-GLAXOSMITHKLINE-US2018214721

PATIENT
  Age: 84 Year
  Sex: Male

DRUGS (1)
  1. FLONASE [Suspect]
     Active Substance: FLUTICASONE PROPIONATE
     Indication: NASAL POLYPS
     Dosage: UNK

REACTIONS (4)
  - Product package associated injury [Unknown]
  - Wrong technique in product usage process [Unknown]
  - Product complaint [Unknown]
  - Product use in unapproved indication [Unknown]
